FAERS Safety Report 6435990-9 (Version None)
Quarter: 2009Q4

REPORT INFORMATION
  Report Type: 
  Country: None (occurrence: None)
  Receive Date: 20091028
  Receipt Date: 20091021
  Transmission Date: 20100525
  Serious: Yes (Death, Hospitalization)
  Sender: FDA-Public Use
  Company Number: THYM-1001078

PATIENT
  Age: 65 Year
  Sex: Female
  Weight: 49 kg

DRUGS (6)
  1. THYMOGLOBULIN [Suspect]
     Indication: APLASTIC ANAEMIA
     Dosage: 125 MG, QD, INTRAVENOUS
     Route: 042
     Dates: start: 20090427, end: 20090501
  2. SULFAMETHOXAZOLE AND TRIMETHOPRIM [Concomitant]
  3. ITRACONAZOLE (ITRACONZOLE) [Concomitant]
  4. PREDNISOLONE ACETATE [Concomitant]
  5. CYCLOSPORINE [Concomitant]
  6. METHYLPREDNISOLONE SODIUM SUCCINATE [Concomitant]

REACTIONS (10)
  - APLASTIC ANAEMIA [None]
  - DISEASE PROGRESSION [None]
  - DISSEMINATED INTRAVASCULAR COAGULATION [None]
  - INFECTION [None]
  - NO THERAPEUTIC RESPONSE [None]
  - PNEUMONIA [None]
  - RENAL FAILURE CHRONIC [None]
  - SEPSIS [None]
  - THERAPEUTIC RESPONSE DECREASED [None]
  - WHITE BLOOD CELL COUNT DECREASED [None]
